FAERS Safety Report 12527384 (Version 1)
Quarter: 2016Q3

REPORT INFORMATION
  Report Type: Spontaneous
  Country: FR (occurrence: FR)
  Receive Date: 20160705
  Receipt Date: 20160705
  Transmission Date: 20161109
  Serious: Yes (Life-Threatening, Hospitalization, Other)
  Sender: FDA-Public Use
  Company Number: FR-PFIZER INC-2016320275

PATIENT
  Age: 86 Year
  Sex: Female

DRUGS (10)
  1. LEVEMIR [Interacting]
     Active Substance: INSULIN DETEMIR
     Dosage: 24 IU, DAILY
     Route: 058
  2. LERCAN [Concomitant]
     Active Substance: LERCANIDIPINE
     Dosage: UNK
  3. COUMADINE [Concomitant]
     Active Substance: WARFARIN SODIUM
     Dosage: UNK
  4. BRICANYL [Concomitant]
     Active Substance: TERBUTALINE SULFATE
     Dosage: UNK
  5. TRIATEC [Suspect]
     Active Substance: RAMIPRIL
     Dosage: 1.25 MG, DAILY
     Route: 048
     Dates: end: 20141011
  6. LASILIX /00032601/ [Concomitant]
     Active Substance: FUROSEMIDE
     Dosage: UNK
  7. DOLIPRANE [Concomitant]
     Active Substance: ACETAMINOPHEN
     Dosage: UNK
  8. LEVEMIR [Interacting]
     Active Substance: INSULIN DETEMIR
     Dosage: 24 IU, DAILY
     Route: 058
     Dates: end: 20141011
  9. SERETIDE [Concomitant]
     Active Substance: FLUTICASONE PROPIONATE\SALMETEROL XINAFOATE
     Dosage: UNK
  10. INSULATARD /00646002/ [Concomitant]
     Active Substance: INSULIN HUMAN
     Dosage: UNK

REACTIONS (10)
  - Fall [Unknown]
  - Eye contusion [Unknown]
  - Hypoglycaemia [Recovered/Resolved]
  - Malaise [Unknown]
  - Syncope [Recovered/Resolved]
  - Bradycardia [Unknown]
  - Loss of consciousness [Unknown]
  - Face injury [Unknown]
  - Drug interaction [Recovered/Resolved]
  - Hypothermia [Unknown]

NARRATIVE: CASE EVENT DATE: 20141011
